FAERS Safety Report 17858953 (Version 6)
Quarter: 2020Q4

REPORT INFORMATION
  Report Type: Report from Study
  Country: US (occurrence: US)
  Receive Date: 20200604
  Receipt Date: 20201026
  Transmission Date: 20210113
  Serious: Yes (Hospitalization)
  Sender: FDA-Public Use
  Company Number: US-ROCHE-2611385

PATIENT
  Age: 57 Year
  Sex: Female
  Weight: 53.1 kg

DRUGS (21)
  1. LENALIDOMIDE [Suspect]
     Active Substance: LENALIDOMIDE
     Indication: DIFFUSE LARGE B-CELL LYMPHOMA
  2. VENETOCLAX. [Suspect]
     Active Substance: VENETOCLAX
     Indication: B-CELL LYMPHOMA
     Dosage: MOST RECENT DOSE ON 07/MAY/2020?MOST RECENT DOSE ON 26/MAY/2020 ?MOST RECENT DOSE ON 15/JUN/2020?MOS
     Route: 048
     Dates: start: 20200404
  3. IBRUTINIB [Suspect]
     Active Substance: IBRUTINIB
     Indication: B-CELL LYMPHOMA
     Dosage: MOST RECENT DOSE ON 07/MAY/2020?MOST RECENT DOSE ON 26/MAY/2020?MOST RECENT DOSE ON 15/JUN/2020?MOST
     Route: 048
     Dates: start: 20200403
  4. OBINUTUZUMAB. [Suspect]
     Active Substance: OBINUTUZUMAB
     Indication: B-CELL LYMPHOMA
     Dosage: MOST RECENT DOSE ON 25/APR/2020?MOST RECENT DOSE ON 16/MAY/2020?MOST RECENT DOSE ON 06/JUN/2020
     Route: 042
     Dates: start: 20200404
  5. DULOXETINE. [Concomitant]
     Active Substance: DULOXETINE
  6. LORATADINE. [Concomitant]
     Active Substance: LORATADINE
     Indication: SEASONAL ALLERGY
     Route: 048
     Dates: start: 20200301
  7. PREDNISONE. [Suspect]
     Active Substance: PREDNISONE
     Indication: DIFFUSE LARGE B-CELL LYMPHOMA
  8. OLANZAPINE. [Concomitant]
     Active Substance: OLANZAPINE
     Indication: DEPRESSION
     Dates: start: 20200301
  9. DRONABINOL. [Concomitant]
     Active Substance: DRONABINOL
  10. ONDANSETRON [Concomitant]
     Active Substance: ONDANSETRON
     Indication: NAUSEA
     Route: 048
     Dates: start: 20200301
  11. PROCHLORPERAZINE. [Concomitant]
     Active Substance: PROCHLORPERAZINE
     Indication: NAUSEA
     Route: 048
     Dates: start: 20200301
  12. COMPAZINE [Concomitant]
     Active Substance: PROCHLORPERAZINE MALEATE
  13. CLARITIN [Concomitant]
     Active Substance: LORATADINE
  14. VENETOCLAX. [Suspect]
     Active Substance: VENETOCLAX
     Indication: DIFFUSE LARGE B-CELL LYMPHOMA
  15. IBRUTINIB [Suspect]
     Active Substance: IBRUTINIB
     Indication: DIFFUSE LARGE B-CELL LYMPHOMA
  16. PREDNISONE. [Suspect]
     Active Substance: PREDNISONE
     Indication: B-CELL LYMPHOMA
     Dosage: MOST RECENT DOSE ON 30/APR/2020?MOST RECENT DOSE ON 21/MAY/2020 ?MOST RECENT DOSE ON 11/JUN/2020
     Route: 048
     Dates: start: 20200403
  17. LENALIDOMIDE [Suspect]
     Active Substance: LENALIDOMIDE
     Indication: B-CELL LYMPHOMA
     Dosage: MOST RECENT DOSE ON 07/MAY/2020?MOST RECENT DOSE ON 26/MAY/2020?MOST RECENT DOSE ON 15/JUN/2020
     Route: 048
     Dates: start: 20200403
  18. METHADONE [Concomitant]
     Active Substance: METHADONE HYDROCHLORIDE
  19. ESOMEPRAZOLE. [Concomitant]
     Active Substance: ESOMEPRAZOLE MAGNESIUM
  20. OBINUTUZUMAB. [Suspect]
     Active Substance: OBINUTUZUMAB
     Indication: DIFFUSE LARGE B-CELL LYMPHOMA
  21. HYDROMORPHONE [Concomitant]
     Active Substance: HYDROMORPHONE

REACTIONS (5)
  - Dehydration [Recovered/Resolved]
  - Hypokalaemia [Recovered/Resolved]
  - Vomiting [Recovered/Resolved]
  - Overdose [Unknown]
  - Diarrhoea [Recovered/Resolved]

NARRATIVE: CASE EVENT DATE: 20200508
